FAERS Safety Report 9472781 (Version 1)
Quarter: 2013Q3

REPORT INFORMATION
  Report Type: Spontaneous
  Country: US (occurrence: US)
  Receive Date: 20130823
  Receipt Date: 20130823
  Transmission Date: 20140515
  Serious: No
  Sender: FDA-Public Use
  Company Number: US-PFIZER INC-2013242901

PATIENT
  Age: 28 Year
  Sex: Female
  Weight: 167 kg

DRUGS (2)
  1. EFFEXOR XR [Suspect]
     Indication: DEPRESSION
     Dosage: 300 MG, 1X/DAY
     Dates: end: 201308
  2. WELLBUTRIN [Concomitant]
     Indication: DEPRESSION
     Dosage: 300 MG, 1X/DAY

REACTIONS (4)
  - Drug withdrawal syndrome [Unknown]
  - Migraine [Unknown]
  - Anxiety [Unknown]
  - Muscle twitching [Unknown]
